FAERS Safety Report 5294331-3 (Version None)
Quarter: 2007Q2

REPORT INFORMATION
  Report Type: 
  Country: None (occurrence: None)
  Receive Date: 20070412
  Receipt Date: 20070404
  Transmission Date: 20071010
  Serious: Yes (Other)
  Sender: FDA-Public Use
  Company Number: US-JNJFOC-20070401160

PATIENT
  Sex: Male

DRUGS (4)
  1. INVEGA [Suspect]
     Route: 048
  2. INVEGA [Suspect]
     Route: 048
  3. INVEGA [Suspect]
     Indication: PSYCHOTIC DISORDER
     Route: 048
  4. CYMBALTA [Concomitant]
     Route: 048

REACTIONS (2)
  - PSYCHOTIC DISORDER [None]
  - URINARY RETENTION [None]
